FAERS Safety Report 9286579 (Version 1)
Quarter: 2013Q2

REPORT INFORMATION
  Report Type: Other
  Country: GB (occurrence: GB)
  Receive Date: 20130513
  Receipt Date: 20130513
  Transmission Date: 20140414
  Serious: Yes (Other)
  Sender: FDA-Public Use
  Company Number: GB-ACTAVIS-2013-08195

PATIENT
  Sex: Male

DRUGS (1)
  1. GABAPENTIN (UNKNOWN) [Suspect]
     Indication: EPILEPSY
     Dosage: 600 MG, DAILY
     Route: 065

REACTIONS (2)
  - Aggression [Unknown]
  - Injury [Unknown]
